FAERS Safety Report 6110974-9 (Version None)
Quarter: 2009Q1

REPORT INFORMATION
  Report Type: 
  Country: None (occurrence: None)
  Receive Date: 20090311
  Receipt Date: 20090303
  Transmission Date: 20090719
  Serious: Yes (Hospitalization, Other)
  Sender: FDA-Public Use
  Company Number: US-ASTRAZENECA-2009UW05758

PATIENT
  Age: 85 Year
  Sex: Male
  Weight: 72.6 kg

DRUGS (8)
  1. CASODEX [Suspect]
     Indication: PROSTATE CANCER
     Route: 048
     Dates: start: 20081201
  2. DIOVAN [Concomitant]
  3. PROTONIX [Concomitant]
  4. PHENYTOIN [Concomitant]
  5. HYDROCHLOROTHIAZIDE [Concomitant]
  6. FLOMAX [Concomitant]
  7. LIPITOR [Concomitant]
  8. STROVITE [Concomitant]

REACTIONS (3)
  - BRAIN OPERATION [None]
  - FALL [None]
  - HEAD INJURY [None]
